FAERS Safety Report 4973312-0 (Version None)
Quarter: 2006Q2

REPORT INFORMATION
  Report Type: 
  Country: None (occurrence: None)
  Receive Date: 20060414
  Receipt Date: 20051230
  Transmission Date: 20061013
  Serious: Yes (Hospitalization, Disabling)
  Sender: FDA-Public Use
  Company Number: US-MERCK-0601USA00133

PATIENT
  Age: 64 Year
  Sex: Male
  Weight: 110 kg

DRUGS (2)
  1. VIOXX [Suspect]
     Indication: ARTHRALGIA
     Route: 048
     Dates: start: 20001114, end: 20020702
  2. ASPIRIN [Concomitant]
     Route: 048

REACTIONS (20)
  - ANGINA PECTORIS [None]
  - BACK DISORDER [None]
  - BACK PAIN [None]
  - BRONCHITIS ACUTE [None]
  - CALCULUS URETERIC [None]
  - CORONARY ARTERY OCCLUSION [None]
  - DEEP VEIN THROMBOSIS [None]
  - DYSPNOEA EXERTIONAL [None]
  - HAEMORRHAGE [None]
  - INCISIONAL HERNIA [None]
  - LUMBAR SPINAL STENOSIS [None]
  - MYOCARDIAL INFARCTION [None]
  - NEPHROLITHIASIS [None]
  - PERIPHERAL VASCULAR DISORDER [None]
  - PNEUMONIA [None]
  - RESPIRATORY DISORDER [None]
  - SPINAL CORD DISORDER [None]
  - TRANSIENT ISCHAEMIC ATTACK [None]
  - UPPER RESPIRATORY TRACT INFECTION [None]
  - VENOUS INJURY [None]
